FAERS Safety Report 22032969 (Version 1)
Quarter: 2023Q1

REPORT INFORMATION
  Report Type: Spontaneous
  Country: US (occurrence: None)
  Receive Date: 20230221
  Receipt Date: 20230221
  Transmission Date: 20230417
  Serious: No
  Sender: FDA-Public Use
  Company Number: None

PATIENT
  Age: 65 Year
  Sex: Female

DRUGS (1)
  1. RINVOQ [Suspect]
     Active Substance: UPADACITINIB
     Indication: Spondyloarthropathy
     Dosage: FREQUENCY : DAILY;?
     Route: 048
     Dates: start: 202212

REACTIONS (2)
  - COVID-19 [None]
  - Therapy interrupted [None]
